FAERS Safety Report 17160532 (Version 1)
Quarter: 2019Q4

REPORT INFORMATION
  Report Type: Spontaneous
  Country: US (occurrence: US)
  Receive Date: 20191216
  Receipt Date: 20191216
  Transmission Date: 20200122
  Serious: No
  Sender: FDA-Public Use
  Company Number: US-AMNEAL PHARMACEUTICALS-2018-IPXL-03897

PATIENT
  Age: 69 Year
  Sex: Male
  Weight: 81.6 kg

DRUGS (1)
  1. COLESTIPOL HYDROCHLORIDE. [Suspect]
     Active Substance: COLESTIPOL HYDROCHLORIDE
     Indication: BLOOD CHOLESTEROL ABNORMAL
     Dosage: 3 DOSAGE FORM, BID
     Route: 048
     Dates: start: 201810

REACTIONS (3)
  - Product dispensing error [Unknown]
  - Product size issue [Unknown]
  - Product use complaint [Unknown]
